FAERS Safety Report 14762172 (Version 2)
Quarter: 2023Q2

REPORT INFORMATION
  Report Type: Spontaneous
  Country: US (occurrence: US)
  Receive Date: 20180416
  Receipt Date: 20230524
  Transmission Date: 20230722
  Serious: No
  Sender: FDA-Public Use
  Company Number: US-BION-006948

PATIENT
  Sex: Female

DRUGS (1)
  1. MOTRIN IB MIGRAINE [Suspect]
     Active Substance: IBUPROFEN
     Indication: Headache
     Dosage: ONCE (4 MOTRIN MIGRAINE PILLS AS ONE?DOSE)
     Dates: start: 20220412

REACTIONS (2)
  - Drug ineffective for unapproved indication [Not Recovered/Not Resolved]
  - Incorrect dose administered [Not Recovered/Not Resolved]

NARRATIVE: CASE EVENT DATE: 20220412
